FAERS Safety Report 25829071 (Version 3)
Quarter: 2025Q3

REPORT INFORMATION
  Report Type: Other
  Country: US (occurrence: US)
  Receive Date: 20250922
  Receipt Date: 20250926
  Transmission Date: 20251021
  Serious: Yes (Other)
  Sender: TRAVERE THERAPEUTICS
  Company Number: US-TRAVERE-2025TVT01320

PATIENT
  Age: 78 Year
  Sex: Male

DRUGS (3)
  1. FILSPARI [Suspect]
     Active Substance: SPARSENTAN
     Indication: IgA nephropathy
     Dosage: 200 MG DAYS 1-14
     Route: 048
     Dates: start: 20250718
  2. FILSPARI [Suspect]
     Active Substance: SPARSENTAN
     Dosage: 400 MG DAYS 15-30
     Route: 048
     Dates: start: 20250801
  3. TARPEYO [Suspect]
     Active Substance: BUDESONIDE
     Indication: Product used for unknown indication
     Dates: start: 202507

REACTIONS (9)
  - Atrial fibrillation [Unknown]
  - Weight increased [Unknown]
  - Constipation [None]
  - Fluid retention [Unknown]
  - Hypotension [Unknown]
  - Fatigue [Unknown]
  - Dizziness [Unknown]
  - Balance disorder [Unknown]
  - Dyspnoea [Unknown]
